FAERS Safety Report 12764037 (Version 2)
Quarter: 2016Q3

REPORT INFORMATION
  Report Type: Spontaneous
  Country: US (occurrence: US)
  Receive Date: 20160920
  Receipt Date: 20160926
  Transmission Date: 20161109
  Serious: Yes (Other)
  Sender: FDA-Public Use
  Company Number: US-BAYER-2016-176348

PATIENT
  Age: 66 Year
  Sex: Female

DRUGS (1)
  1. BETASERON [Suspect]
     Active Substance: INTERFERON BETA-1B
     Indication: MULTIPLE SCLEROSIS
     Dosage: UNK
     Dates: end: 20160812

REACTIONS (7)
  - Drug intolerance [None]
  - Drug ineffective [None]
  - Multiple sclerosis [None]
  - Asthenia [None]
  - Fall [None]
  - Gait disturbance [None]
  - Balance disorder [None]
